FAERS Safety Report 8232320-7 (Version None)
Quarter: 2012Q1

REPORT INFORMATION
  Report Type: 
  Country: None (occurrence: None)
  Receive Date: 20120323
  Receipt Date: 20120314
  Transmission Date: 20120608
  Serious: Yes (Other)
  Sender: FDA-Public Use
  Company Number: US-ASTRAZENECA-2012SE17438

PATIENT
  Age: 70 Year
  Sex: Female

DRUGS (8)
  1. BUPROPION HCL [Concomitant]
  2. ASPIRIN [Concomitant]
  3. LEVOTHYROXINE SODIUM [Concomitant]
  4. LAMOTRIGINE [Concomitant]
  5. VITAMIN D [Concomitant]
  6. QVAR 40 [Concomitant]
  7. SEROQUEL [Suspect]
     Indication: SCHIZOPHRENIA
     Route: 048
  8. COMBIVENT [Concomitant]

REACTIONS (1)
  - JAUNDICE [None]
